FAERS Safety Report 4688761-8 (Version None)
Quarter: 2005Q2

REPORT INFORMATION
  Report Type: 
  Country: None (occurrence: None)
  Receive Date: 20050610
  Receipt Date: 20050610
  Transmission Date: 20051028
  Serious: Yes (Other)
  Sender: FDA-Public Use
  Company Number: None

PATIENT
  Age: 50 Year
  Sex: Female

DRUGS (2)
  1. FENTANYL [Suspect]
     Indication: PANCREATITIS CHRONIC
     Dosage: 1 PATCH Q 60 HRS
     Dates: start: 20050430
  2. FENTANYL [Suspect]
     Indication: RADICULITIS
     Dosage: 1 PATCH Q 60 HRS
     Dates: start: 20050430

REACTIONS (2)
  - DRUG INEFFECTIVE [None]
  - PHARMACEUTICAL PRODUCT COMPLAINT [None]
